FAERS Safety Report 8385047-5 (Version None)
Quarter: 2012Q2

REPORT INFORMATION
  Report Type: 
  Country: None (occurrence: None)
  Receive Date: 20120524
  Receipt Date: 20120517
  Transmission Date: 20120825
  Serious: Yes (Hospitalization, Disabling, Other)
  Sender: FDA-Public Use
  Company Number: US-MERCK-1202USA03889

PATIENT
  Age: 71 Year
  Sex: Female

DRUGS (5)
  1. VITAMINS (UNSPECIFIED) [Concomitant]
     Route: 065
     Dates: start: 20020101, end: 20120101
  2. LIPITOR [Concomitant]
     Route: 065
  3. FOSAMAX [Suspect]
     Indication: BONE DENSITY DECREASED
     Route: 048
     Dates: start: 20010101, end: 20070101
  4. CHONDROITIN SULFATE SODIUM AND DIMETHYL SULFONE AND GLUCOSAMINE [Concomitant]
     Route: 065
     Dates: start: 20020101, end: 20120101
  5. VITAMIN D (UNSPECIFIED) [Concomitant]
     Route: 065
     Dates: start: 20020101, end: 20120101

REACTIONS (6)
  - FEMUR FRACTURE [None]
  - BACK INJURY [None]
  - LOW TURNOVER OSTEOPATHY [None]
  - MUSCULAR WEAKNESS [None]
  - ARTHROPATHY [None]
  - HYPERTENSION [None]
